FAERS Safety Report 15677975 (Version 2)
Quarter: 2018Q4

REPORT INFORMATION
  Report Type: Spontaneous
  Country: FI (occurrence: FI)
  Receive Date: 20181130
  Receipt Date: 20181207
  Transmission Date: 20190205
  Serious: Yes (Hospitalization, Other)
  Sender: FDA-Public Use
  Company Number: FI-MYLANLABS-2018M1089429

PATIENT
  Sex: Female

DRUGS (7)
  1. CITALOPRAM [Concomitant]
     Active Substance: CITALOPRAM HYDROBROMIDE
     Indication: PRODUCT USED FOR UNKNOWN INDICATION
  2. OLMESARTAN [Concomitant]
     Active Substance: OLMESARTAN
     Indication: PRODUCT USED FOR UNKNOWN INDICATION
  3. AMILORIDE [Concomitant]
     Active Substance: AMILORIDE
     Indication: MINERAL SUPPLEMENTATION
     Dosage: 5 MILLIGRAM, QD
  4. THYROXINE [Concomitant]
     Active Substance: LEVOTHYROXINE
     Indication: PRODUCT USED FOR UNKNOWN INDICATION
  5. LITHIUM. [Suspect]
     Active Substance: LITHIUM
     Indication: BIPOLAR I DISORDER
     Dosage: UNK
  6. DIUREX /00022001/ [Interacting]
     Active Substance: HYDROCHLOROTHIAZIDE
     Indication: BLOOD PRESSURE INCREASED
     Dosage: 50 MILLIGRAM, QD
  7. VALPROATE [Concomitant]
     Active Substance: VALPROIC ACID
     Indication: PRODUCT USED FOR UNKNOWN INDICATION

REACTIONS (23)
  - Somnolence [Recovered/Resolved]
  - Dehydration [Recovered/Resolved]
  - Mobility decreased [Recovered/Resolved]
  - White blood cell count increased [Recovered/Resolved]
  - Blood creatinine abnormal [Recovered/Resolved]
  - Blood sodium decreased [Recovered/Resolved]
  - Asthenia [Recovered/Resolved]
  - Drug interaction [Recovered/Resolved]
  - Poisoning [Recovered/Resolved]
  - Muscle rigidity [Recovered/Resolved]
  - Peripheral coldness [Recovered/Resolved]
  - Slow speech [Recovered/Resolved]
  - Gait disturbance [Recovered/Resolved]
  - Lip dry [Recovered/Resolved]
  - Nervous system disorder [Recovered/Resolved]
  - Memory impairment [Recovered/Resolved]
  - Hypophagia [Recovered/Resolved]
  - Condition aggravated [Recovered/Resolved]
  - Speech disorder [Recovered/Resolved]
  - Hypothyroidism [Recovered/Resolved]
  - Balance disorder [Recovered/Resolved]
  - Agnosia [Recovered/Resolved]
  - Electrocardiogram T wave abnormal [Recovered/Resolved]
